FAERS Safety Report 6023198-0 (Version None)
Quarter: 2008Q4

REPORT INFORMATION
  Report Type: 
  Country: None (occurrence: None)
  Receive Date: 20081224
  Receipt Date: 20081224
  Transmission Date: 20090506
  Serious: Yes (Other)
  Sender: FDA-Public Use
  Company Number: None

PATIENT
  Age: 48 Year
  Sex: Female
  Weight: 58.9676 kg

DRUGS (9)
  1. TRAZODONE HCL [Suspect]
     Indication: DEPRESSION
     Dosage: 50-150 MG. BEDTIME PO
     Route: 048
     Dates: start: 20030620, end: 20081219
  2. TRAZODONE HCL [Suspect]
     Indication: INSOMNIA
     Dosage: 50-150 MG. BEDTIME PO
     Route: 048
     Dates: start: 20030620, end: 20081219
  3. LYRICA [Concomitant]
  4. SOMA [Concomitant]
  5. HYDROCODONE [Concomitant]
  6. PAXIL [Concomitant]
  7. LEXAPRO [Concomitant]
  8. WELLBUTRIN [Concomitant]
  9. TOPAMAX [Concomitant]

REACTIONS (22)
  - BALANCE DISORDER [None]
  - BURNING SENSATION [None]
  - CERVICAL CORD COMPRESSION [None]
  - CHILLS [None]
  - COORDINATION ABNORMAL [None]
  - DIZZINESS [None]
  - DYSPHAGIA [None]
  - EYE SWELLING [None]
  - FIBROMYALGIA [None]
  - HEART RATE IRREGULAR [None]
  - HYPOAESTHESIA [None]
  - INTERVERTEBRAL DISC PROTRUSION [None]
  - JOINT SWELLING [None]
  - MULTIPLE SCLEROSIS [None]
  - OEDEMA PERIPHERAL [None]
  - PAIN IN EXTREMITY [None]
  - PALPITATIONS [None]
  - PARAESTHESIA [None]
  - PRURITUS [None]
  - SWELLING FACE [None]
  - TREMOR [None]
  - URTICARIA [None]
